FAERS Safety Report 8619804 (Version 2)
Quarter: 2013Q4

REPORT INFORMATION
  Report Type: Spontaneous
  Country: US (occurrence: US)
  Receive Date: 20120618
  Receipt Date: 20131025
  Transmission Date: 20140711
  Serious: Yes (Other)
  Sender: FDA-Public Use
  Company Number: US-ASTRAZENECA-2012SE38582

PATIENT
  Age: 49 Year
  Sex: Male
  Weight: 122.5 kg

DRUGS (5)
  1. SEROQUEL [Suspect]
     Indication: BIPOLAR DISORDER
     Route: 048
     Dates: start: 2003
  2. SEROQUEL [Suspect]
     Indication: BIPOLAR DISORDER
     Dosage: GERNERIC
     Route: 048
     Dates: start: 201204
  3. SEROQUEL [Suspect]
     Indication: BIPOLAR DISORDER
     Route: 048
     Dates: start: 201204, end: 201207
  4. SEROQUEL [Suspect]
     Indication: BIPOLAR DISORDER
     Dosage: OCCASIONALLY HE TAKES EXTRA SEROQUEL
     Route: 048
  5. SEROQUEL [Suspect]
     Indication: BIPOLAR DISORDER
     Route: 048
     Dates: start: 20131015

REACTIONS (5)
  - HIV infection [Unknown]
  - Mania [Unknown]
  - Insomnia [Unknown]
  - Extra dose administered [Unknown]
  - Drug ineffective [Unknown]
